FAERS Safety Report 11540287 (Version 3)
Quarter: 2015Q4

REPORT INFORMATION
  Report Type: Report from Study
  Country: TW (occurrence: TW)
  Receive Date: 20150923
  Receipt Date: 20151209
  Transmission Date: 20160304
  Serious: Yes (Death, Life-Threatening, Hospitalization, Other)
  Sender: FDA-Public Use
  Company Number: TW-009507513-1505TWN003216

PATIENT
  Age: 76 Year
  Sex: Male

DRUGS (11)
  1. MAGNESIUM OXIDE. [Concomitant]
     Active Substance: MAGNESIUM OXIDE
     Indication: CONSTIPATION
     Dosage: TOTAL DAILY 4000 MG
     Route: 048
     Dates: start: 20140401
  2. PEMBROLIZUMAB. [Suspect]
     Active Substance: PEMBROLIZUMAB
     Indication: METASTATIC MALIGNANT MELANOMA
     Dosage: 2 MG/KG, Q3W
     Route: 042
     Dates: start: 20150126, end: 20150423
  3. AMLODIPINE [Concomitant]
     Active Substance: AMLODIPINE BESYLATE
     Indication: HYPERTENSION
     Dosage: 5 MG, QD
     Route: 048
     Dates: start: 20140401
  4. ULTRACET [Concomitant]
     Active Substance: ACETAMINOPHEN\TRAMADOL HYDROCHLORIDE
     Indication: PAIN MANAGEMENT
     Dosage: 37.5 MG TRAMADOL+ 325 MG ACETAMINOPHEN, Q6H; STRENGTH: 37.5 MG TRAMADOL+325 MG ACETAMINOPHEN
     Route: 048
     Dates: start: 20150115, end: 20150507
  5. FEXOFENADINE HYDROCHLORIDE. [Concomitant]
     Active Substance: FEXOFENADINE HYDROCHLORIDE
     Indication: PRURITUS
     Dosage: 180 MG, QD
     Route: 048
     Dates: start: 20141023, end: 20150508
  6. PEMBROLIZUMAB. [Suspect]
     Active Substance: PEMBROLIZUMAB
     Dosage: 2 MG/KG, Q3W
     Route: 042
     Dates: start: 20150604, end: 20150604
  7. PEMBROLIZUMAB. [Suspect]
     Active Substance: PEMBROLIZUMAB
     Dosage: 2 MG/KG, Q3W ALSO REPORTED AS TOTAL DAILY DOSE 150 MG
     Route: 042
     Dates: start: 20150615, end: 20150615
  8. ENTECAVIR. [Concomitant]
     Active Substance: ENTECAVIR
     Indication: VIRAL HEPATITIS CARRIER
     Dosage: 0.5 MG, QD
     Route: 048
     Dates: start: 20150402
  9. SILYMARIN [Concomitant]
     Active Substance: MILK THISTLE
     Indication: PROPHYLAXIS
     Dosage: 150 MG, BID
     Route: 048
     Dates: start: 20140401
  10. DEXCHLORPHENIRAMINE MALEATE. [Concomitant]
     Active Substance: DEXCHLORPHENIRAMINE MALEATE
     Indication: PRURITUS
     Dosage: 2 MG, QID
     Route: 048
     Dates: start: 20141023, end: 20150508
  11. SENNOSIDES. [Concomitant]
     Active Substance: SENNOSIDES
     Indication: CONSTIPATION
     Dosage: 15 MG, HS (REPORTED AS 7.5 X 2 HS)
     Route: 048
     Dates: start: 20140401

REACTIONS (19)
  - Alanine aminotransferase increased [Unknown]
  - Alanine aminotransferase increased [Unknown]
  - Alanine aminotransferase increased [Recovering/Resolving]
  - Alanine aminotransferase increased [Unknown]
  - Alanine aminotransferase increased [Recovering/Resolving]
  - Alanine aminotransferase increased [Recovering/Resolving]
  - Alanine aminotransferase increased [Unknown]
  - Alanine aminotransferase increased [Recovering/Resolving]
  - Alanine aminotransferase increased [Recovering/Resolving]
  - Alanine aminotransferase increased [Recovered/Resolved]
  - Alanine aminotransferase increased [Recovering/Resolving]
  - Alanine aminotransferase increased [Recovered/Resolved]
  - Sepsis [Fatal]
  - Alanine aminotransferase increased [Unknown]
  - Alanine aminotransferase increased [Recovered/Resolved]
  - Alanine aminotransferase increased [Unknown]
  - Alanine aminotransferase increased [Recovering/Resolving]
  - Alanine aminotransferase increased [Recovered/Resolved]
  - Pneumonitis [Unknown]

NARRATIVE: CASE EVENT DATE: 20150508
